FAERS Safety Report 19386276 (Version 2)
Quarter: 2021Q3

REPORT INFORMATION
  Report Type: Report from Study
  Country: CA (occurrence: GB)
  Receive Date: 20210608
  Receipt Date: 20210922
  Transmission Date: 20211014
  Serious: Yes (Hospitalization, Other)
  Sender: FDA-Public Use
  Company Number: GB-ORION CORPORATION ORION PHARMA-21_00014708

PATIENT
  Age: 83 Year
  Sex: Female

DRUGS (3)
  1. BENEPALI [Suspect]
     Active Substance: ETANERCEPT
     Indication: RHEUMATOID ARTHRITIS
     Route: 058
     Dates: start: 20200820
  2. BENEPALI [Suspect]
     Active Substance: ETANERCEPT
     Dosage: STARTED ON 29?APR (UNSPECIFIED YEAR)
     Route: 065
  3. METHOTREXATE (TRADE NAME UNKNOWN) [Suspect]
     Active Substance: METHOTREXATE
     Indication: PRODUCT USED FOR UNKNOWN INDICATION
     Route: 065

REACTIONS (6)
  - Malignant melanoma [Unknown]
  - Musculoskeletal stiffness [Not Recovered/Not Resolved]
  - Alopecia [Unknown]
  - Postoperative wound complication [Unknown]
  - Blister [Not Recovered/Not Resolved]
  - Cataract [Unknown]
